FAERS Safety Report 20976214 (Version 2)
Quarter: 2022Q2

REPORT INFORMATION
  Report Type: Spontaneous
  Country: US (occurrence: US)
  Receive Date: 20220617
  Receipt Date: 20220621
  Transmission Date: 20220721
  Serious: No
  Sender: FDA-Public Use
  Company Number: US-PFIZER INC-202200845307

PATIENT
  Age: 75 Year
  Sex: Female
  Weight: 65.77 kg

DRUGS (3)
  1. PAXLOVID [Suspect]
     Active Substance: NIRMATRELVIR\RITONAVIR
     Indication: COVID-19 treatment
     Dosage: UNK
     Dates: start: 20220613
  2. OMEPRAZOLE [Suspect]
     Active Substance: OMEPRAZOLE
     Dosage: UNK
  3. CALCIUM CARBONATE [Suspect]
     Active Substance: CALCIUM CARBONATE
     Dosage: UNK

REACTIONS (6)
  - Dyspepsia [Unknown]
  - Abdominal discomfort [Unknown]
  - Flatulence [Unknown]
  - Dysgeusia [Unknown]
  - Oropharyngeal discomfort [Unknown]
  - Gastrointestinal sounds abnormal [Unknown]

NARRATIVE: CASE EVENT DATE: 20220601
